FAERS Safety Report 14252775 (Version 1)
Quarter: 2017Q4

REPORT INFORMATION
  Report Type: Spontaneous
  Country: US (occurrence: US)
  Receive Date: 20171206
  Receipt Date: 20171206
  Transmission Date: 20180321
  Serious: Yes (Death)
  Sender: FDA-Public Use
  Company Number: US-CIPLA LTD.-2016US10568

PATIENT

DRUGS (10)
  1. MELOXICAM. [Suspect]
     Active Substance: MELOXICAM
     Dosage: UNK
     Route: 048
  2. ATORVASTATIN [Suspect]
     Active Substance: ATORVASTATIN
     Dosage: UNK
     Route: 048
  3. LISINOPRIL. [Suspect]
     Active Substance: LISINOPRIL
     Dosage: UNK
     Route: 048
     Dates: end: 2007
  4. FEXOFENADINE [Suspect]
     Active Substance: FEXOFENADINE\FEXOFENADINE HYDROCHLORIDE
     Dosage: UNK
     Route: 048
  5. METOPROLOL. [Suspect]
     Active Substance: METOPROLOL
     Dosage: UNK
     Route: 048
  6. ALLOPURINOL. [Suspect]
     Active Substance: ALLOPURINOL
     Dosage: UNK
     Route: 048
  7. IBUPROFEN. [Suspect]
     Active Substance: IBUPROFEN
     Dosage: UNK
     Route: 048
  8. PSEUDOEPHEDRINE [Suspect]
     Active Substance: PSEUDOEPHEDRINE
     Dosage: UNK
     Route: 048
  9. NAPROXEN. [Suspect]
     Active Substance: NAPROXEN
     Dosage: UNK
     Route: 048
  10. CLOPIDOGREL [Suspect]
     Active Substance: CLOPIDOGREL BISULFATE
     Dosage: UNK
     Route: 048

REACTIONS (2)
  - Completed suicide [Fatal]
  - Toxicity to various agents [Fatal]

NARRATIVE: CASE EVENT DATE: 2007
